FAERS Safety Report 20176917 (Version 1)
Quarter: 2021Q4

REPORT INFORMATION
  Report Type: Spontaneous
  Country: US (occurrence: None)
  Receive Date: 20211209
  Receipt Date: 20211209
  Transmission Date: 20220303
  Serious: No
  Sender: FDA-Public Use
  Company Number: None

PATIENT
  Age: 16 Year
  Sex: Female

DRUGS (4)
  1. IVERMECTIN [Suspect]
     Active Substance: IVERMECTIN
  2. DECADRON [Suspect]
     Active Substance: DEXAMETHASONE
  3. ZINC [Suspect]
     Active Substance: ZINC
  4. ACETYLCYSTEINE [Suspect]
     Active Substance: ACETYLCYSTEINE

REACTIONS (7)
  - Acidosis [None]
  - Dizziness [None]
  - Vertigo [None]
  - Tremor [None]
  - Muscle spasms [None]
  - Malaise [None]
  - Accidental overdose [None]
